FAERS Safety Report 9734687 (Version 1)
Quarter: 2013Q4

REPORT INFORMATION
  Report Type: Spontaneous
  Country: US (occurrence: None)
  Receive Date: 20131204
  Receipt Date: 20131204
  Transmission Date: 20140711
  Serious: Yes (Hospitalization)
  Sender: FDA-Public Use
  Company Number: None

PATIENT
  Age: 84 Year
  Sex: Male
  Weight: 103.3 kg

DRUGS (2)
  1. FUROSEMIDE [Suspect]
     Indication: CARDIAC FAILURE CONGESTIVE
     Route: 048
     Dates: start: 20130923
  2. METOLAZONE [Suspect]
     Indication: CARDIAC FAILURE CONGESTIVE
     Dosage: 10/07/2013 THRU10/28/2013

REACTIONS (5)
  - Asthenia [None]
  - Oedema [None]
  - Dehydration [None]
  - Orthostatic hypotension [None]
  - Blood creatinine increased [None]
